FAERS Safety Report 17137775 (Version 3)
Quarter: 2025Q3

REPORT INFORMATION
  Report Type: Spontaneous
  Country: EU (occurrence: EU)
  Receive Date: 20191211
  Receipt Date: 20250718
  Transmission Date: 20251020
  Serious: Yes (Other)
  Sender: AUROBINDO
  Company Number: EU-EMA-20141117-KASHYAPPRD-111219787

PATIENT
  Age: 57 Year
  Sex: Female

DRUGS (6)
  1. OMEPRAZOLE [Suspect]
     Active Substance: OMEPRAZOLE
     Indication: Product used for unknown indication
     Route: 065
  2. PREDNISONE [Suspect]
     Active Substance: PREDNISONE
     Indication: Subacute cutaneous lupus erythematosus
     Route: 065
  3. HYDROXYCHLOROQUINE [Suspect]
     Active Substance: HYDROXYCHLOROQUINE
     Indication: Subacute cutaneous lupus erythematosus
     Route: 065
  4. METHOTREXATE [Suspect]
     Active Substance: METHOTREXATE
     Indication: Subacute cutaneous lupus erythematosus
     Route: 065
  5. MYCOPHENOLATE MOFETIL [Suspect]
     Active Substance: MYCOPHENOLATE MOFETIL
     Indication: Subacute cutaneous lupus erythematosus
     Route: 065
  6. AZATHIOPRINE [Concomitant]
     Active Substance: AZATHIOPRINE
     Indication: Systemic lupus erythematosus
     Route: 065

REACTIONS (16)
  - Skin lesion [Recovering/Resolving]
  - Scar [Recovering/Resolving]
  - Hypergammaglobulinaemia [Recovering/Resolving]
  - DNA antibody [Recovering/Resolving]
  - General physical health deterioration [Recovering/Resolving]
  - Evans syndrome [Recovering/Resolving]
  - Antinuclear antibody positive [Recovering/Resolving]
  - Systemic lupus erythematosus [Recovering/Resolving]
  - Lymphadenopathy [Recovering/Resolving]
  - Antinuclear antibody positive [Recovering/Resolving]
  - Pericarditis [Recovering/Resolving]
  - Dermatitis psoriasiform [Recovering/Resolving]
  - Bicytopenia [Recovering/Resolving]
  - Pyrexia [Recovering/Resolving]
  - Subacute cutaneous lupus erythematosus [Recovering/Resolving]
  - Drug ineffective [Unknown]
